FAERS Safety Report 26042757 (Version 1)
Quarter: 2025Q4

REPORT INFORMATION
  Report Type: Spontaneous
  Country: US (occurrence: None)
  Receive Date: 20251113
  Receipt Date: 20251113
  Transmission Date: 20260118
  Serious: Yes (Other)
  Sender: FDA-CTU
  Company Number: None

PATIENT
  Age: 21 Year
  Sex: Male
  Weight: 87.39 kg

DRUGS (6)
  1. OLANZAPINE [Suspect]
     Active Substance: OLANZAPINE
     Indication: Psychotic disorder
     Dosage: FREQUENCY : DAILY;?
     Route: 048
     Dates: start: 20241209
  2. OLANZAPINE [Suspect]
     Active Substance: OLANZAPINE
     Indication: Mood swings
  3. Olanzapine 20 mg at HS [Concomitant]
     Dates: start: 20241209, end: 20250916
  4. Prazosin 1 mg at HS [Concomitant]
  5. Cogentin 1 mg BID [Concomitant]
  6. olanzapine 15 mg HS [Concomitant]

REACTIONS (3)
  - Trismus [None]
  - Dysphagia [None]
  - Restless legs syndrome [None]

NARRATIVE: CASE EVENT DATE: 20250909
